FAERS Safety Report 20754035 (Version 1)
Quarter: 2022Q2

REPORT INFORMATION
  Report Type: Spontaneous
  Country: US (occurrence: US)
  Receive Date: 20220426
  Receipt Date: 20220426
  Transmission Date: 20220721
  Serious: No
  Sender: FDA-Public Use
  Company Number: US-NOVARTISTESTPH-NVSC2022US091378

PATIENT
  Age: 62 Year
  Sex: Female
  Weight: 72.12 kg

DRUGS (5)
  1. ENALAPRIL [Suspect]
     Active Substance: ENALAPRIL
     Indication: Type 1 diabetes mellitus
     Dosage: 40 MG, QD (STARTED ATLEAST 7 YEARS AGO)
     Route: 065
  2. SIMVASTATIN [Concomitant]
     Active Substance: SIMVASTATIN
     Indication: Diabetes mellitus
     Dosage: 40 MG, QD (STARTED 7 YEARS AGO AND STOPPED 3 DAYS BEFORE STARTING PAXLOVID)
     Route: 065
  3. SIMVASTATIN [Concomitant]
     Active Substance: SIMVASTATIN
     Indication: Blood cholesterol
  4. HUMALOG [Concomitant]
     Active Substance: INSULIN LISPRO
     Indication: Type 1 diabetes mellitus
     Dosage: UP TO 5 INJECTIONS A DAY. DOSE DETERMINED BY MEAL PLAN AND HIGH GLUCOSE EPISODES. ON AVERAGE DAY DOE
     Route: 065
  5. LANTUS [Concomitant]
     Active Substance: INSULIN GLARGINE
     Indication: Type 1 diabetes mellitus
     Dosage: 42 UNITS, QD (STARTED 5-6 YEARS AGO)
     Route: 065

REACTIONS (2)
  - Dysgeusia [Unknown]
  - COVID-19 [Unknown]

NARRATIVE: CASE EVENT DATE: 20220413
